FAERS Safety Report 12573639 (Version 1)
Quarter: 2016Q3

REPORT INFORMATION
  Report Type: Spontaneous
  Country: US (occurrence: None)
  Receive Date: 20160719
  Receipt Date: 20160719
  Transmission Date: 20161109
  Serious: Yes (Hospitalization)
  Sender: FDA-Public Use
  Company Number: None

PATIENT
  Age: 40 Year
  Sex: Male
  Weight: 79.38 kg

DRUGS (2)
  1. KENALOG [Suspect]
     Active Substance: TRIAMCINOLONE ACETONIDE
     Indication: JOINT INJURY
     Route: 013
     Dates: start: 20160705, end: 20160705
  2. LIDOCAINE, 1% [Suspect]
     Active Substance: LIDOCAINE
     Indication: JOINT INJURY
     Route: 013
     Dates: start: 20160705, end: 20160705

REACTIONS (3)
  - Bacteraemia [None]
  - Staphylococcal sepsis [None]
  - Arthritis bacterial [None]

NARRATIVE: CASE EVENT DATE: 20160715
